FAERS Safety Report 10881849 (Version 1)
Quarter: 2015Q1

REPORT INFORMATION
  Report Type: Spontaneous
  Country: US (occurrence: None)
  Receive Date: 20150226
  Receipt Date: 20150226
  Transmission Date: 20150721
  Serious: No
  Sender: FDA-Public Use
  Company Number: None

PATIENT
  Age: 68 Year
  Sex: Male
  Weight: 93 kg

DRUGS (7)
  1. HYDROCHLOROTHIAZIDE. [Concomitant]
     Active Substance: HYDROCHLOROTHIAZIDE
  2. ASPIRIN. [Concomitant]
     Active Substance: ASPIRIN
  3. CARVEIDOLOL [Concomitant]
  4. LISINOPRIL. [Concomitant]
     Active Substance: LISINOPRIL
  5. ATORVASTATIN [Suspect]
     Active Substance: ATORVASTATIN
     Indication: HIGH DENSITY LIPOPROTEIN
     Dosage: 1 TABLET QD ORAL
     Route: 048
  6. OMEPRAZOLE. [Concomitant]
     Active Substance: OMEPRAZOLE
  7. AMLODIPINE [Concomitant]
     Active Substance: AMLODIPINE BESYLATE

REACTIONS (1)
  - Myalgia [None]

NARRATIVE: CASE EVENT DATE: 20150128
